FAERS Safety Report 24725680 (Version 1)
Quarter: 2024Q4

REPORT INFORMATION
  Report Type: Report from Study
  Country: US (occurrence: US)
  Receive Date: 20241212
  Receipt Date: 20241212
  Transmission Date: 20250114
  Serious: Yes (Hospitalization)
  Sender: RECORDATI
  Company Number: US-RECORDATI RARE DISEASE INC.-2024009691

PATIENT

DRUGS (14)
  1. ISTURISA [Suspect]
     Active Substance: OSILODROSTAT PHOSPHATE
     Indication: Cushing^s syndrome
     Dosage: 1 MILLIGRAM, QD (AT BED TIME)
     Route: 048
     Dates: end: 2024
  2. ELIQUIS [Concomitant]
     Active Substance: APIXABAN
     Indication: Product used for unknown indication
     Dosage: 5 MILLIGRAM, BID (TABLET)
     Route: 048
     Dates: start: 20160809
  3. SYNTHROID [Concomitant]
     Active Substance: LEVOTHYROXINE SODIUM
     Indication: Product used for unknown indication
     Dosage: 112 MICROGRAM, QD (TABLET)
     Route: 048
     Dates: start: 20170809
  4. TYLENOL EXTRA STRENGTH [Concomitant]
     Active Substance: ACETAMINOPHEN
     Indication: Product used for unknown indication
     Dosage: 500 MILLIGRAM, PRN (TABLET)
     Route: 048
     Dates: start: 20171012
  5. GABAPENTIN [Concomitant]
     Active Substance: GABAPENTIN
     Indication: Product used for unknown indication
     Dosage: 600 MILLIGRAM, TID (TABLET)
     Route: 048
     Dates: start: 20190809
  6. ATORVASTATIN CALCIUM [Concomitant]
     Active Substance: ATORVASTATIN CALCIUM
     Indication: Product used for unknown indication
     Dosage: 20 MILLIGRAM, QD (TABLET)
     Route: 048
     Dates: start: 20200809
  7. CALCIUM CARBONATE\CHOLECALCIFEROL [Concomitant]
     Active Substance: CALCIUM CARBONATE\CHOLECALCIFEROL
     Indication: Product used for unknown indication
     Dosage: 600-800 (UNITS NOT REPORTED) QD (TABLET)
     Route: 048
     Dates: start: 20200809
  8. CRANBERRY [Concomitant]
     Active Substance: CRANBERRY
     Indication: Product used for unknown indication
     Dosage: 250-30 MILLIGRAMS, QD (TABLET)
     Route: 048
     Dates: start: 20200809
  9. VITAMIN D3 [Concomitant]
     Active Substance: CHOLECALCIFEROL
     Indication: Product used for unknown indication
     Dosage: 25 MICROGRAM, QD (TABLET)
     Route: 048
     Dates: start: 20200809
  10. MORPHINE SULFATE [Concomitant]
     Active Substance: MORPHINE SULFATE
     Indication: Product used for unknown indication
     Dosage: 10 MG/5ML, TID (SOLUTION)
     Route: 048
     Dates: start: 20200809
  11. NORTRIPTYLINE HYDROCHLORIDE [Concomitant]
     Active Substance: NORTRIPTYLINE HYDROCHLORIDE
     Indication: Product used for unknown indication
     Dosage: 50 MILLIGRAM, QD (CAPSULE)
     Route: 048
     Dates: start: 20200809
  12. PANTOPRAZOLE SODIUM [Concomitant]
     Active Substance: PANTOPRAZOLE SODIUM
     Indication: Product used for unknown indication
     Dosage: 40 MILLIGRAM, QD (TABLET)
     Route: 048
     Dates: start: 20200809
  13. INCRUSE ELLIPTA [Concomitant]
     Active Substance: UMECLIDINIUM BROMIDE
     Indication: Product used for unknown indication
     Dosage: 62.5 (UNITS NOT REPORTED), QD (AEROSOL)
     Dates: start: 20210809
  14. METHENAMINE HIPPURATE [Concomitant]
     Active Substance: METHENAMINE HIPPURATE
     Indication: Product used for unknown indication
     Dosage: 1 GRAM, BID (TABLET)
     Route: 048
     Dates: start: 20210809

REACTIONS (3)
  - Pneumonia [Not Recovered/Not Resolved]
  - Large intestinal obstruction [Not Recovered/Not Resolved]
  - Off label use [Recovered/Resolved]

NARRATIVE: CASE EVENT DATE: 20241116
